FAERS Safety Report 26067874 (Version 1)
Quarter: 2025Q4

REPORT INFORMATION
  Report Type: Spontaneous
  Country: US (occurrence: US)
  Receive Date: 20251120
  Receipt Date: 20251120
  Transmission Date: 20260117
  Serious: Yes (Other)
  Sender: JOHNSON AND JOHNSON
  Company Number: US-JNJFOC-20251152846

PATIENT
  Age: 75 Year
  Sex: Male

DRUGS (1)
  1. ERDAFITINIB [Suspect]
     Active Substance: ERDAFITINIB
     Indication: Bladder cancer
     Route: 065

REACTIONS (2)
  - Subretinal fluid [Recovering/Resolving]
  - Blindness [Recovering/Resolving]
